FAERS Safety Report 21705994 (Version 1)
Quarter: 2022Q4

REPORT INFORMATION
  Report Type: Spontaneous
  Country: JP (occurrence: JP)
  Receive Date: 20221209
  Receipt Date: 20221209
  Transmission Date: 20230112
  Serious: Yes (Other)
  Sender: FDA-Public Use
  Company Number: JP-ELI_LILLY_AND_COMPANY-JP202211014240

PATIENT
  Age: 49 Year
  Sex: Male
  Weight: 63.6 kg

DRUGS (2)
  1. CYRAMZA [Suspect]
     Active Substance: RAMUCIRUMAB
     Indication: Oesophageal carcinoma
     Dosage: 8 MG/KG, CYCLICAL
     Route: 042
  2. PACLITAXEL [Concomitant]
     Active Substance: PACLITAXEL
     Indication: Oesophageal carcinoma
     Dosage: 80 MG/M2, CYCLICAL

REACTIONS (3)
  - Implant site infection [Unknown]
  - Febrile neutropenia [Unknown]
  - Neutropenia [Unknown]
